FAERS Safety Report 13571991 (Version 5)
Quarter: 2017Q4

REPORT INFORMATION
  Report Type: Spontaneous
  Country: JP (occurrence: JP)
  Receive Date: 20170523
  Receipt Date: 20171227
  Transmission Date: 20180320
  Serious: Yes (Hospitalization)
  Sender: FDA-Public Use
  Company Number: JP-ASTELLAS-2017JP009106AA

PATIENT
  Age: 67 Year
  Sex: Female
  Weight: 61 kg

DRUGS (25)
  1. PREDNISOLONE. [Concomitant]
     Active Substance: PREDNISOLONE
     Route: 048
  2. MICAMLO [Concomitant]
     Active Substance: AMLODIPINE BESYLATE\TELMISARTAN
     Indication: HYPERTENSION
     Dosage: UNK UNK, ONCE DAILY
     Route: 048
  3. VOGLIBOSE [Concomitant]
     Active Substance: VOGLIBOSE
     Indication: DIABETES MELLITUS
     Dosage: 0.3 MG, THRICE DAILY
     Route: 048
  4. JANUVIA [Concomitant]
     Active Substance: SITAGLIPTIN PHOSPHATE
     Indication: DIABETES MELLITUS
     Route: 048
  5. GLIMEPIRIDE. [Concomitant]
     Active Substance: GLIMEPIRIDE
     Indication: DIABETES MELLITUS
     Dosage: 0.5 MG, ONCE DAILY
     Route: 048
  6. PROGRAF [Suspect]
     Active Substance: TACROLIMUS\TACROLIMUS ANHYDROUS
     Indication: LUPUS NEPHRITIS
     Route: 048
     Dates: start: 20170324, end: 20170517
  7. MOVER [Suspect]
     Active Substance: ACTARIT
     Indication: RHEUMATOID ARTHRITIS
     Dosage: UNK UNK, UNKNOWN FREQ.
     Route: 065
  8. AZATHIOPRINE. [Concomitant]
     Active Substance: AZATHIOPRINE
     Indication: PRODUCT USED FOR UNKNOWN INDICATION
     Dosage: UNK UNK, UNKNOWN FREQ.
     Route: 048
  9. BENET [Concomitant]
     Active Substance: RISEDRONATE SODIUM
     Indication: OSTEOPOROSIS
     Route: 048
  10. SIMPONI [Suspect]
     Active Substance: GOLIMUMAB
     Indication: RHEUMATOID ARTHRITIS
     Route: 058
     Dates: start: 201505, end: 20170222
  11. MOVER [Suspect]
     Active Substance: ACTARIT
     Dosage: UNK UNK, UNKNOWN FREQ.
     Route: 065
  12. AZULFIDINE EN-TABS [Concomitant]
     Active Substance: SULFASALAZINE
     Indication: RHEUMATOID ARTHRITIS
     Route: 048
     Dates: start: 201206
  13. PYDOXAL [Concomitant]
     Active Substance: PYRIDOXAL
     Indication: PRODUCT USED FOR UNKNOWN INDICATION
     Route: 048
  14. LIPITOR [Suspect]
     Active Substance: ATORVASTATIN CALCIUM
     Indication: DYSLIPIDAEMIA
     Route: 048
     Dates: start: 201702, end: 201702
  15. PROMAC                             /01312301/ [Concomitant]
     Active Substance: POLAPREZINC
     Indication: ZINC DEFICIENCY
     Route: 048
  16. PREDNISOLONE. [Concomitant]
     Active Substance: PREDNISOLONE
     Indication: RHEUMATOID ARTHRITIS
     Route: 048
     Dates: start: 201412
  17. BISOPROLOL                         /00802602/ [Concomitant]
     Active Substance: BISOPROLOL
     Indication: ATRIAL FIBRILLATION
     Route: 048
  18. PREDNISOLONE. [Concomitant]
     Active Substance: PREDNISOLONE
     Route: 048
     Dates: start: 20170527
  19. METGLUCO [Concomitant]
     Active Substance: METFORMIN HYDROCHLORIDE
     Indication: DIABETES MELLITUS
     Route: 048
  20. PREDNISOLONE. [Concomitant]
     Active Substance: PREDNISOLONE
     Dosage: 30 MG THEN TAPERED, ONCE DAILY
     Route: 048
     Dates: start: 20170311, end: 20170517
  21. PREDNISOLONE. [Concomitant]
     Active Substance: PREDNISOLONE
     Route: 048
     Dates: start: 20170518, end: 20170526
  22. PROGRAF [Suspect]
     Active Substance: TACROLIMUS\TACROLIMUS ANHYDROUS
     Route: 048
     Dates: start: 20170630
  23. PROGRAF [Suspect]
     Active Substance: TACROLIMUS\TACROLIMUS ANHYDROUS
     Indication: RHEUMATOID ARTHRITIS
     Route: 048
     Dates: start: 201501
  24. AZULFIDINE EN-TABS [Concomitant]
     Active Substance: SULFASALAZINE
     Route: 048
     Dates: start: 201209, end: 20170316
  25. SAIKOKARYUKOTSUBOREITO [Concomitant]
     Active Substance: HERBALS
     Indication: RHEUMATOID ARTHRITIS
     Route: 048

REACTIONS (6)
  - Systemic lupus erythematosus [Recovering/Resolving]
  - Lupus nephritis [Recovering/Resolving]
  - Rash [Recovered/Resolved]
  - Nephrotic syndrome [Recovering/Resolving]
  - Off label use [Unknown]
  - Intentional underdose [Unknown]

NARRATIVE: CASE EVENT DATE: 201501
